FAERS Safety Report 5221025-2 (Version None)
Quarter: 2007Q1

REPORT INFORMATION
  Report Type: 
  Country: None (occurrence: None)
  Receive Date: 20070126
  Receipt Date: 20070116
  Transmission Date: 20070707
  Serious: Yes (Death, Hospitalization, Other)
  Sender: FDA-Public Use
  Company Number: US-PURDUE-USA_2007_0026196

PATIENT
  Sex: Male

DRUGS (1)
  1. OXYCONTIN [Suspect]
     Indication: DRUG USE FOR UNKNOWN INDICATION
     Dosage: 60 MG, BID
     Dates: start: 19970606, end: 20040322

REACTIONS (10)
  - BLOOD PRESSURE INCREASED [None]
  - CARDIAC DISORDER [None]
  - COLD SWEAT [None]
  - DEATH [None]
  - DRUG DEPENDENCE [None]
  - DRUG WITHDRAWAL SYNDROME [None]
  - HEPATIC FAILURE [None]
  - HYPERHIDROSIS [None]
  - INTESTINAL PERFORATION [None]
  - RENAL FAILURE [None]
